FAERS Safety Report 6423792-9 (Version None)
Quarter: 2009Q4

REPORT INFORMATION
  Report Type: 
  Country: None (occurrence: None)
  Receive Date: 20091030
  Receipt Date: 20091030
  Transmission Date: 20100525
  Serious: Yes (Hospitalization)
  Sender: FDA-Public Use
  Company Number: None

PATIENT
  Age: 79 Year
  Sex: Male

DRUGS (2)
  1. FUROSEMIDE [Suspect]
     Indication: OEDEMA
     Dosage: 80 MG EVERY DAY PO
     Route: 048
     Dates: start: 20080813, end: 20081007
  2. METOLAZONE [Suspect]
     Indication: OEDEMA
     Dosage: 2.5 MG EVERY DAY PO
     Route: 048
     Dates: start: 20080829, end: 20081007

REACTIONS (1)
  - HYPOKALAEMIA [None]
